FAERS Safety Report 6603354-0 (Version None)
Quarter: 2010Q1

REPORT INFORMATION
  Report Type: 
  Country: None (occurrence: None)
  Receive Date: 20100226
  Receipt Date: 20090224
  Transmission Date: 20100710
  Serious: No
  Sender: FDA-Public Use
  Company Number: A0770220A

PATIENT
  Age: 75 Year
  Sex: Female

DRUGS (3)
  1. VALTREX [Suspect]
     Route: 048
  2. CHEMOTHERAPY [Concomitant]
     Dates: start: 20090101
  3. MULTIPLE MEDICATIONS [Concomitant]

REACTIONS (1)
  - VISUAL IMPAIRMENT [None]
